FAERS Safety Report 8292696 (Version 3)
Quarter: 2013Q3

REPORT INFORMATION
  Report Type: Spontaneous
  Country: US (occurrence: US)
  Receive Date: 20111215
  Receipt Date: 20130802
  Transmission Date: 20140515
  Serious: Yes (Death)
  Sender: FDA-Public Use
  Company Number: PHHY2011US108166

PATIENT
  Age: 53 Year
  Sex: Female

DRUGS (4)
  1. METHYLPHENIDATE [Suspect]
     Route: 048
  2. DOXEPIN [Suspect]
  3. CLONAZEPAM [Suspect]
  4. NAPROXEN [Suspect]

REACTIONS (2)
  - Completed suicide [Fatal]
  - Intentional overdose [Fatal]
